FAERS Safety Report 12168957 (Version 3)
Quarter: 2016Q2

REPORT INFORMATION
  Report Type: Report from Study
  Country: US (occurrence: US)
  Receive Date: 20160310
  Receipt Date: 20160401
  Transmission Date: 20160815
  Serious: Yes (Other)
  Sender: FDA-Public Use
  Company Number: US-AMGEN-USASL2016029195

PATIENT
  Age: 53 Year
  Sex: Female

DRUGS (1)
  1. ENBREL [Suspect]
     Active Substance: ETANERCEPT
     Indication: RHEUMATOID ARTHRITIS
     Dosage: 50 MG, X 1 WEEKLY
     Route: 065
     Dates: start: 20160302

REACTIONS (11)
  - Decreased appetite [Unknown]
  - Injection site pain [Unknown]
  - Injection site bruising [Unknown]
  - Anxiety [Unknown]
  - Loss of consciousness [Unknown]
  - Gastric disorder [Recovered/Resolved]
  - Pruritus generalised [Unknown]
  - Hyperhidrosis [Unknown]
  - Diarrhoea [Recovering/Resolving]
  - Nausea [Unknown]
  - Paraesthesia [Unknown]

NARRATIVE: CASE EVENT DATE: 201603
